FAERS Safety Report 6366560-9 (Version None)
Quarter: 2009Q3

REPORT INFORMATION
  Report Type: 
  Country: None (occurrence: None)
  Receive Date: 20090921
  Receipt Date: 20090907
  Transmission Date: 20100115
  Serious: Yes (Hospitalization)
  Sender: FDA-Public Use
  Company Number: US-BAYER-200918236GPV

PATIENT
  Age: 22 Year
  Sex: Female
  Weight: 64 kg

DRUGS (4)
  1. ALEMTUZUMAB [Suspect]
     Indication: MULTIPLE SCLEROSIS
     Dosage: TOTAL DAILY DOSE: 12 MG
     Route: 042
     Dates: start: 20090330, end: 20090401
  2. ALEMTUZUMAB [Suspect]
     Dosage: TOTAL DAILY DOSE: 12 MG
     Route: 042
     Dates: start: 20090407, end: 20090408
  3. LORATADINE [Concomitant]
     Indication: URTICARIA
     Dates: start: 20090330
  4. RANITIDINE [Concomitant]
     Dates: start: 20090330

REACTIONS (2)
  - BRADYCARDIA [None]
  - PLEURISY [None]
